FAERS Safety Report 12483328 (Version 2)
Quarter: 2019Q3

REPORT INFORMATION
  Report Type: Report from Study
  Country: US (occurrence: US)
  Receive Date: 20160621
  Receipt Date: 20190809
  Transmission Date: 20191004
  Serious: Yes (Other)
  Sender: FDA-Public Use
  Company Number: US-AMGEN-USASL2016077148

PATIENT
  Age: 72 Year
  Sex: Female

DRUGS (2)
  1. PROLIA [Suspect]
     Active Substance: DENOSUMAB
     Indication: OSTEOPOROSIS POSTMENOPAUSAL
     Dosage: UNK, Q6MO
     Route: 065
     Dates: start: 2013
  2. PROLIA [Suspect]
     Active Substance: DENOSUMAB
     Dosage: UNK, Q6MO
     Route: 065
     Dates: start: 2017

REACTIONS (10)
  - Spinal fracture [Unknown]
  - Bone disorder [Unknown]
  - Abdominal pain upper [Unknown]
  - Fractured sacrum [Unknown]
  - Malignant melanoma [Unknown]
  - Diarrhoea [Unknown]
  - Body height decreased [Unknown]
  - Hyperhidrosis [Not Recovered/Not Resolved]
  - Back pain [Unknown]
  - Urticaria [Unknown]

NARRATIVE: CASE EVENT DATE: 201601
